FAERS Safety Report 14663109 (Version 1)
Quarter: 2018Q1

REPORT INFORMATION
  Report Type: Spontaneous
  Country: ME (occurrence: ME)
  Receive Date: 20180321
  Receipt Date: 20180321
  Transmission Date: 20180509
  Serious: Yes (Other)
  Sender: FDA-Public Use
  Company Number: ME-GLENMARK PHARMACEUTICALS-2018GMK033486

PATIENT
  Age: 56 Year
  Sex: Female

DRUGS (1)
  1. DICLOFENAC SODIUM. [Suspect]
     Active Substance: DICLOFENAC SODIUM
     Indication: BACK PAIN
     Dosage: 200 MG, QD (SLOW-RELEASE, FOR OVER 7 YEARS)
     Route: 065

REACTIONS (2)
  - Gastrointestinal disorder [Unknown]
  - Drug abuse [Unknown]
